FAERS Safety Report 4263225-4 (Version None)
Quarter: 2004Q1

REPORT INFORMATION
  Report Type: 
  Country: None (occurrence: None)
  Receive Date: 20040104
  Receipt Date: 20040104
  Transmission Date: 20041129
  Serious: Yes (Other)
  Sender: FDA-Public Use
  Company Number: None

PATIENT
  Age: 54 Year
  Sex: Male
  Weight: 112.4921 kg

DRUGS (1)
  1. AZATHIOPRINE [Suspect]
     Indication: RHEUMATOID ARTHRITIS
     Dosage: 100 MG PO QD
     Route: 048
     Dates: start: 20031118, end: 20031207

REACTIONS (5)
  - GASTROINTESTINAL DISORDER [None]
  - HYPERSENSITIVITY [None]
  - HYPOKALAEMIA [None]
  - PALPITATIONS [None]
  - PYREXIA [None]
